FAERS Safety Report 5730852-4 (Version None)
Quarter: 2008Q2

REPORT INFORMATION
  Report Type: 
  Country: None (occurrence: None)
  Receive Date: 20080507
  Receipt Date: 20080425
  Transmission Date: 20081010
  Serious: Yes (Other)
  Sender: FDA-Public Use
  Company Number: FR-PFIZER INC-2008036632

PATIENT
  Sex: Male

DRUGS (1)
  1. DALACINE [Suspect]

REACTIONS (1)
  - COMA [None]
